FAERS Safety Report 7111253-3 (Version None)
Quarter: 2010Q4

REPORT INFORMATION
  Report Type: 
  Country: None (occurrence: None)
  Receive Date: 20101118
  Receipt Date: 20091201
  Transmission Date: 20110411
  Serious: No
  Sender: FDA-Public Use
  Company Number: US-PFIZER INC-2009288388

PATIENT

DRUGS (1)
  1. ZYVOX [Suspect]
     Indication: CELLULITIS

REACTIONS (3)
  - COGNITIVE DISORDER [None]
  - FEELING ABNORMAL [None]
  - MEMORY IMPAIRMENT [None]
